FAERS Safety Report 10166360 (Version 1)
Quarter: 2014Q2

REPORT INFORMATION
  Report Type: Report from Study
  Country: FR (occurrence: FR)
  Receive Date: 20140512
  Receipt Date: 20140512
  Transmission Date: 20141212
  Serious: Yes (Hospitalization, Disabling)
  Sender: FDA-Public Use
  Company Number: FR-ROCHE-1396315

PATIENT
  Sex: Female

DRUGS (8)
  1. RITUXIMAB [Suspect]
     Indication: RHEUMATOID ARTHRITIS
     Route: 065
     Dates: start: 20090318
  2. RITUXIMAB [Suspect]
     Route: 065
     Dates: start: 20090403
  3. RITUXIMAB [Suspect]
     Route: 065
     Dates: start: 20100804
  4. RITUXIMAB [Suspect]
     Route: 065
     Dates: start: 20100819
  5. TOCILIZUMAB [Suspect]
     Indication: RHEUMATOID ARTHRITIS
     Route: 065
     Dates: start: 20111102
  6. LEFLUNOMIDE [Concomitant]
     Route: 065
     Dates: start: 20090318
  7. LEFLUNOMIDE [Concomitant]
     Route: 065
     Dates: start: 20100804
  8. CORTANCYL [Concomitant]
     Route: 065

REACTIONS (7)
  - Spinal cord compression [Recovered/Resolved]
  - Liver function test abnormal [Unknown]
  - Cauda equina syndrome [Not Recovered/Not Resolved]
  - Neutropenia [Unknown]
  - Injury [Recovered/Resolved]
  - Phlebitis [Recovered/Resolved]
  - Hypogammaglobulinaemia [Recovered/Resolved]
